FAERS Safety Report 10707513 (Version 2)
Quarter: 2015Q1

REPORT INFORMATION
  Report Type: Spontaneous
  Country: CA (occurrence: CA)
  Receive Date: 20150113
  Receipt Date: 20150113
  Transmission Date: 20150721
  Serious: Yes (Hospitalization, Other)
  Sender: FDA-Public Use
  Company Number: CA-GSKJP-DK201013200002

PATIENT
  Age: 57 Year
  Sex: Female

DRUGS (2)
  1. XELODA [Suspect]
     Active Substance: CAPECITABINE
     Route: 065
  2. TYKERB [Suspect]
     Active Substance: LAPATINIB DITOSYLATE
     Indication: BREAST CANCER METASTATIC
     Dosage: 1250 MG, QD
     Route: 048
     Dates: start: 20100319

REACTIONS (10)
  - Blister [Unknown]
  - Movement disorder [Unknown]
  - Skin discolouration [Unknown]
  - Pharyngitis streptococcal [Unknown]
  - Pharyngitis [Not Recovered/Not Resolved]
  - Seizure [Unknown]
  - Burning sensation [Unknown]
  - Fall [Unknown]
  - Haemorrhage [Unknown]
  - Asthenia [Unknown]

NARRATIVE: CASE EVENT DATE: 20130406
